FAERS Safety Report 22587403 (Version 1)
Quarter: 2023Q2

REPORT INFORMATION
  Report Type: Report from Study
  Country: CO (occurrence: CO)
  Receive Date: 20230612
  Receipt Date: 20230612
  Transmission Date: 20230722
  Serious: Yes (Hospitalization, Other)
  Sender: FDA-Public Use
  Company Number: CO-ABBVIE-4189480

PATIENT
  Sex: Male

DRUGS (3)
  1. VENCLEXTA [Suspect]
     Active Substance: VENETOCLAX
     Indication: Acute myeloid leukaemia
     Dosage: 400 MILLIGRAM
     Route: 048
     Dates: start: 20221018, end: 20230518
  2. VENCLEXTA [Suspect]
     Active Substance: VENETOCLAX
     Indication: Acute myeloid leukaemia
     Dosage: 400 MILLIGRAM
     Route: 048
     Dates: start: 20220918, end: 20230518
  3. VIDAZA [Concomitant]
     Active Substance: AZACITIDINE
     Indication: Acute myeloid leukaemia
     Dosage: 1 AMPOULE
     Route: 058
     Dates: start: 202210, end: 202210

REACTIONS (16)
  - Acute myeloid leukaemia recurrent [Not Recovered/Not Resolved]
  - Fatigue [Not Recovered/Not Resolved]
  - Cardiac disorder [Not Recovered/Not Resolved]
  - Fluid retention [Not Recovered/Not Resolved]
  - Cardiac valve disease [Not Recovered/Not Resolved]
  - Haemoglobin decreased [Recovered/Resolved]
  - Injury [Not Recovered/Not Resolved]
  - Underweight [Recovering/Resolving]
  - Haemoglobin decreased [Recovering/Resolving]
  - Hypoxia [Not Recovered/Not Resolved]
  - Therapeutic product effect incomplete [Unknown]
  - Rash [Not Recovered/Not Resolved]
  - Weight fluctuation [Unknown]
  - Skin ulcer [Not Recovered/Not Resolved]
  - Skin injury [Not Recovered/Not Resolved]
  - Mass [Not Recovered/Not Resolved]

NARRATIVE: CASE EVENT DATE: 20230101
